FAERS Safety Report 5334433-6 (Version None)
Quarter: 2007Q2

REPORT INFORMATION
  Report Type: 
  Country: None (occurrence: None)
  Receive Date: 20070523
  Receipt Date: 20070523
  Transmission Date: 20071010
  Serious: No
  Sender: FDA-Public Use
  Company Number: None

PATIENT
  Age: 37 Year
  Sex: Female
  Weight: 65.318 kg

DRUGS (1)
  1. BUDEPRION XL 300MG ? [Suspect]
     Indication: DEPRESSION
     Dosage: 1 TABLET 1 TIME A DAY PO
     Route: 048
     Dates: start: 20070401, end: 20070521

REACTIONS (4)
  - DEPRESSION [None]
  - DIZZINESS [None]
  - PRURITUS [None]
  - THERAPEUTIC RESPONSE UNEXPECTED WITH DRUG SUBSTITUTION [None]
